FAERS Safety Report 16645363 (Version 3)
Quarter: 2019Q4

REPORT INFORMATION
  Report Type: Spontaneous
  Country: AT (occurrence: AT)
  Receive Date: 20190729
  Receipt Date: 20191119
  Transmission Date: 20200122
  Serious: No
  Sender: FDA-Public Use
  Company Number: AT-BEH-2019104731

PATIENT
  Sex: Male
  Weight: 110 kg

DRUGS (11)
  1. PRIVIGEN [Suspect]
     Active Substance: HUMAN IMMUNOGLOBULIN G
     Dosage: 25 GRAM, TOT
     Route: 065
     Dates: start: 20190225, end: 20190225
  2. PRIVIGEN [Suspect]
     Active Substance: HUMAN IMMUNOGLOBULIN G
     Dosage: 25 GRAM, TOT
     Route: 065
     Dates: start: 20190417, end: 20190417
  3. PRIVIGEN [Suspect]
     Active Substance: HUMAN IMMUNOGLOBULIN G
     Dosage: 25 GRAM, TOT
     Route: 065
     Dates: start: 20181227, end: 20181227
  4. PRIVIGEN [Suspect]
     Active Substance: HUMAN IMMUNOGLOBULIN G
     Dosage: 25 GRAM, TOT
     Route: 065
     Dates: start: 20190116, end: 20190116
  5. PRIVIGEN [Suspect]
     Active Substance: HUMAN IMMUNOGLOBULIN G
     Dosage: 25 GRAM, TOT
     Route: 065
     Dates: start: 20190325, end: 20190325
  6. NOMEXOR [Concomitant]
     Active Substance: NEBIVOLOL HYDROCHLORIDE
  7. PRIVIGEN [Suspect]
     Active Substance: HUMAN IMMUNOGLOBULIN G
     Dosage: 10 GRAM, TOT
     Route: 065
     Dates: start: 20181121, end: 20181121
  8. TRITACE [Concomitant]
     Active Substance: RAMIPRIL
  9. TRITTICO [Concomitant]
     Active Substance: TRAZODONE HYDROCHLORIDE
  10. PRIVIGEN [Suspect]
     Active Substance: HUMAN IMMUNOGLOBULIN G
     Indication: CHRONIC FATIGUE SYNDROME
     Dosage: 10 GRAM, TOT
     Route: 065
     Dates: start: 20181112, end: 20181112
  11. PRADAXA [Concomitant]
     Active Substance: DABIGATRAN ETEXILATE MESYLATE

REACTIONS (3)
  - Product use in unapproved indication [Unknown]
  - Underdose [Unknown]
  - Drug ineffective for unapproved indication [Unknown]
